FAERS Safety Report 7438172-7 (Version None)
Quarter: 2011Q2

REPORT INFORMATION
  Report Type: 
  Country: None (occurrence: None)
  Receive Date: 20110426
  Receipt Date: 20100908
  Transmission Date: 20111010
  Serious: Yes (Hospitalization, Other)
  Sender: FDA-Public Use
  Company Number: US-BAYER-201010647NA

PATIENT
  Age: 28 Year
  Sex: Female
  Weight: 109 kg

DRUGS (5)
  1. DARVOCET [Concomitant]
  2. YAZ [Suspect]
     Indication: PRODUCT USED FOR UNKNOWN INDICATION
  3. HYDROCODONE [Concomitant]
  4. NAPROXEN [Concomitant]
     Dosage: 500 MG, UNK
     Dates: start: 20090718
  5. YASMIN [Suspect]
     Indication: PRODUCT USED FOR UNKNOWN INDICATION
     Route: 048

REACTIONS (10)
  - DUODENAL ULCER [None]
  - ANAEMIA [None]
  - NAUSEA [None]
  - DUODENITIS [None]
  - CHOLELITHIASIS [None]
  - JAUNDICE [None]
  - PAIN [None]
  - CHOLECYSTITIS CHRONIC [None]
  - OESOPHAGITIS [None]
  - FLANK PAIN [None]
